FAERS Safety Report 24329000 (Version 2)
Quarter: 2024Q3

REPORT INFORMATION
  Report Type: Spontaneous
  Country: US (occurrence: US)
  Receive Date: 20240917
  Receipt Date: 20240920
  Transmission Date: 20241016
  Serious: No
  Sender: AMGEN
  Company Number: US-AMGEN-USASP2024183834

PATIENT
  Age: 60 Year
  Sex: Female

DRUGS (3)
  1. ENBREL [Suspect]
     Active Substance: ETANERCEPT
     Indication: Arthritis
     Dosage: 50 MILLIGRAM, QWK
     Route: 058
     Dates: start: 2006
  2. ENBREL [Suspect]
     Active Substance: ETANERCEPT
     Indication: Off label use
     Dosage: 50 MILLIGRAM, Q2WK
     Route: 058
  3. ENBREL [Suspect]
     Active Substance: ETANERCEPT
     Dosage: 50 MILLIGRAM, Q3WK
     Route: 058

REACTIONS (4)
  - Device difficult to use [Unknown]
  - Drug dose omission by device [Unknown]
  - Device use error [Unknown]
  - Off label use [Unknown]

NARRATIVE: CASE EVENT DATE: 20060101
